FAERS Safety Report 8267345-9 (Version None)
Quarter: 2012Q2

REPORT INFORMATION
  Report Type: 
  Country: None (occurrence: None)
  Receive Date: 20120409
  Receipt Date: 20120330
  Transmission Date: 20120825
  Serious: Yes (Hospitalization)
  Sender: FDA-Public Use
  Company Number: PHHY2012DE028034

PATIENT
  Sex: Male
  Weight: 77 kg

DRUGS (14)
  1. RASILEZ [Suspect]
     Dosage: 150 MG/DAY
     Route: 048
     Dates: start: 20110919
  2. CARVEDILOL [Suspect]
     Indication: HYPERTENSION
     Dosage: 3.125 MG/DAY
     Route: 048
     Dates: start: 20100101, end: 20110919
  3. LYRICA [Concomitant]
     Indication: POLYNEUROPATHY
     Dosage: 150 MG/DAY
     Route: 048
     Dates: start: 20100101, end: 20110919
  4. AMLODIPINE [Suspect]
     Indication: HYPERTENSION
     Dosage: 10 MG/DAY
     Route: 048
     Dates: start: 20000101
  5. ATACAND [Suspect]
     Indication: HYPERTENSION
     Dosage: 16 MG/DAY
     Route: 048
     Dates: start: 20000101
  6. MOLSIDOMINE [Suspect]
     Indication: HYPERTENSION
     Dosage: 8 MG/DAY
     Route: 048
     Dates: start: 20000101
  7. ACETAMINOPHEN [Concomitant]
     Indication: NEURALGIA
     Dosage: 1000 MG/DAY
     Route: 048
     Dates: start: 20100101, end: 20110919
  8. RASILEZ [Suspect]
     Indication: HYPERTENSION
     Dosage: 300 MG/DAY
     Route: 048
     Dates: start: 20100322, end: 20110919
  9. EBRANTIL [Suspect]
     Indication: HYPERTENSION
     Dosage: 120 MG/DAY
     Route: 048
     Dates: start: 20090101
  10. ANGIOTENSIN CONVERTING ENZYME BLOCKERS [Concomitant]
     Dates: start: 20110321
  11. ASPIRIN [Concomitant]
     Indication: THROMBOSIS
     Dosage: 100 MG/DAY
     Dates: start: 20000101
  12. TORSEMIDE [Suspect]
     Indication: HYPERTENSION
     Dosage: 10 MG/DAY (DOSE DECREASED ON 19 SEP 2011)
     Route: 048
     Dates: start: 20000101
  13. VASODILATORS USED IN CARDIAC DISEASES [Concomitant]
     Dates: end: 20110411
  14. ANTIHYPERTENSIVES [Concomitant]
     Dates: end: 20110919

REACTIONS (2)
  - SYNCOPE [None]
  - CIRCULATORY COLLAPSE [None]
